FAERS Safety Report 8933396 (Version 1)
Quarter: 2012Q4

REPORT INFORMATION
  Report Type: 
  Country: DK (occurrence: IR)
  Receive Date: 20121128
  Receipt Date: 20121128
  Transmission Date: 20130627
  Serious: Yes (Hospitalization)
  Sender: FDA-Public Use
  Company Number: IR-FRI-1000040640

PATIENT
  Age: 27 Year
  Sex: Female

DRUGS (4)
  1. CITALOPRAM [Suspect]
     Indication: PANIC ATTACK
     Dosage: 20 mg
  2. CITALOPRAM [Suspect]
     Dosage: 40 mg
  3. DOXYCYCLINE [Suspect]
     Indication: BRUCELLOSIS
     Dosage: 200 mg
  4. RIFAMPIN [Suspect]
     Indication: BRUCELLOSIS
     Dosage: 600 mg

REACTIONS (2)
  - Panic attack [Recovered/Resolved]
  - Drug interaction [Unknown]
